FAERS Safety Report 23762848 (Version 2)
Quarter: 2024Q2

REPORT INFORMATION
  Report Type: Spontaneous
  Country: US (occurrence: US)
  Receive Date: 20240419
  Receipt Date: 20240516
  Transmission Date: 20240715
  Serious: No
  Sender: FDA-Public Use
  Company Number: US-SA-SAC20240417001150

PATIENT
  Age: 9 Year
  Sex: Male

DRUGS (2)
  1. DUPIXENT [Suspect]
     Active Substance: DUPILUMAB
     Indication: Eosinophilic oesophagitis
     Dosage: 600 MG, 1X
     Route: 058
     Dates: start: 20240328, end: 20240328
  2. DUPIXENT [Suspect]
     Active Substance: DUPILUMAB
     Dosage: 300 MG, Q4W
     Route: 058
     Dates: start: 20240429

REACTIONS (8)
  - Vein disorder [Recovered/Resolved]
  - Fatigue [Not Recovered/Not Resolved]
  - Affective disorder [Unknown]
  - Anger [Unknown]
  - Emotional disorder [Unknown]
  - Arthralgia [Unknown]
  - Incorrect dose administered [Unknown]
  - Inappropriate schedule of product administration [Unknown]

NARRATIVE: CASE EVENT DATE: 20240101
